FAERS Safety Report 5068533-5 (Version None)
Quarter: 2006Q3

REPORT INFORMATION
  Report Type: 
  Country: None (occurrence: None)
  Receive Date: 20060802
  Receipt Date: 20051110
  Transmission Date: 20061208
  Serious: No
  Sender: FDA-Public Use
  Company Number: US-BRISTOL-MYERS SQUIBB COMPANY-13176813

PATIENT
  Age: 73 Year
  Sex: Male
  Weight: 85 kg

DRUGS (7)
  1. COUMADIN [Suspect]
     Indication: DEEP VEIN THROMBOSIS
     Dates: start: 20051019
  2. FLOMAX [Concomitant]
  3. NEXIUM [Concomitant]
  4. SAW PALMETTO [Concomitant]
  5. MULTI-VITAMIN [Concomitant]
  6. SELENIUM SULFIDE [Concomitant]
  7. ACIDOPHILUS [Concomitant]

REACTIONS (1)
  - INTERNATIONAL NORMALISED RATIO INCREASED [None]
